FAERS Safety Report 8950053 (Version 1)
Quarter: 2012Q4

REPORT INFORMATION
  Report Type: 
  Country: US (occurrence: US)
  Receive Date: 20121205
  Receipt Date: 20121205
  Transmission Date: 20130627
  Serious: Yes (Death)
  Sender: FDA-Public Use
  Company Number: US-ASTELLAS-2012US011738

PATIENT
  Sex: Female

DRUGS (1)
  1. TARCEVA [Suspect]
     Indication: RECTAL CANCER
     Dosage: UNK
     Route: 048

REACTIONS (2)
  - Off label use [Unknown]
  - Malignant neoplasm progression [Fatal]
